FAERS Safety Report 12530841 (Version 1)
Quarter: 2016Q3

REPORT INFORMATION
  Report Type: Spontaneous
  Country: JP (occurrence: JP)
  Receive Date: 20160706
  Receipt Date: 20160706
  Transmission Date: 20161109
  Serious: Yes (Other)
  Sender: FDA-Public Use
  Company Number: JP-PFIZER INC-2016264314

PATIENT
  Age: 73 Year
  Sex: Female

DRUGS (14)
  1. LYRICA [Suspect]
     Active Substance: PREGABALIN
     Dosage: UNK
     Route: 048
     Dates: end: 20160516
  2. BLOPRESS [Concomitant]
     Active Substance: CANDESARTAN CILEXETIL
     Dosage: 0.5 MG, 1X/DAY
  3. MAINTATE [Concomitant]
     Active Substance: BISOPROLOL FUMARATE
     Dosage: 0.625 MG, 1X/DAY
  4. SELBEX [Concomitant]
     Active Substance: TEPRENONE
     Dosage: 50 MG, 3X/DAY
  5. LECTISOL [Suspect]
     Active Substance: DAPSONE
     Dosage: 25 MG, 3X/DAY
     Dates: end: 20160517
  6. NEXIUM [Concomitant]
     Active Substance: ESOMEPRAZOLE MAGNESIUM
     Dosage: 20 MG, 1X/DAY
  7. LUPRAC [Concomitant]
     Active Substance: TORSEMIDE
     Dosage: 4 MG, 1X/DAY
  8. UBRETID [Concomitant]
     Active Substance: DISTIGMINE BROMIDE
     Dosage: 5 MG, 1X/DAY
  9. URSO [Concomitant]
     Active Substance: URSODIOL
     Dosage: 200 MG, 2X/DAY
  10. PREDNISOLONE. [Concomitant]
     Active Substance: PREDNISOLONE
     Dosage: 5 MG, 2X/DAY
  11. NICOTINAMIDE [Concomitant]
     Active Substance: NIACINAMIDE
     Dosage: 2 G, DAILY
  12. EBRANTIL [Concomitant]
     Active Substance: URAPIDIL
     Dosage: 15 MG, 2X/DAY
  13. LYRICA [Suspect]
     Active Substance: PREGABALIN
     Dosage: 150 MG, 2X/DAY
     Route: 048
     Dates: start: 20160517, end: 20160522
  14. PRONON [Concomitant]
     Active Substance: PROPAFENONE
     Dosage: 150 MG, 2X/DAY

REACTIONS (1)
  - Anaemia macrocytic [Recovering/Resolving]

NARRATIVE: CASE EVENT DATE: 20160517
